FAERS Safety Report 17507140 (Version 2)
Quarter: 2021Q1

REPORT INFORMATION
  Report Type: Spontaneous
  Country: US (occurrence: US)
  Receive Date: 20200305
  Receipt Date: 20210227
  Transmission Date: 20210419
  Serious: No
  Sender: FDA-Public Use
  Company Number: US-ROCHE-2511353

PATIENT
  Age: 31 Year
  Sex: Female

DRUGS (2)
  1. XOLAIR [Suspect]
     Active Substance: OMALIZUMAB
     Indication: PRODUCT USED FOR UNKNOWN INDICATION
     Route: 058
     Dates: start: 20190201
  2. ZYRTEC (UNITED STATES) [Concomitant]
     Dates: start: 20181213

REACTIONS (1)
  - Sinus congestion [Unknown]

NARRATIVE: CASE EVENT DATE: 20190905
